FAERS Safety Report 9443961 (Version 3)
Quarter: 2013Q3

REPORT INFORMATION
  Report Type: Spontaneous
  Country: US (occurrence: US)
  Receive Date: 20130807
  Receipt Date: 20130829
  Transmission Date: 20140515
  Serious: No
  Sender: FDA-Public Use
  Company Number: US-BIOGENIDEC-2013BI055143

PATIENT
  Age: 64 Year
  Sex: Male

DRUGS (4)
  1. AVONEX [Suspect]
     Indication: MULTIPLE SCLEROSIS
     Route: 030
     Dates: start: 19960101, end: 20110701
  2. AVONEX [Suspect]
     Indication: MULTIPLE SCLEROSIS
     Route: 030
     Dates: end: 20120601
  3. AVONEX [Suspect]
     Indication: MULTIPLE SCLEROSIS
     Route: 030
     Dates: start: 20130701
  4. AVONEX [Suspect]
     Indication: MULTIPLE SCLEROSIS
     Route: 030
     Dates: start: 20130715

REACTIONS (15)
  - Feeling jittery [Recovered/Resolved]
  - Musculoskeletal disorder [Unknown]
  - Balance disorder [Unknown]
  - Nervousness [Unknown]
  - Thyroid disorder [Unknown]
  - Blood pressure abnormal [Unknown]
  - Ulcer [Unknown]
  - Hypoaesthesia [Not Recovered/Not Resolved]
  - Muscle twitching [Recovered/Resolved]
  - Memory impairment [Recovered/Resolved]
  - Gastric disorder [Recovered/Resolved]
  - Gastric ulcer [Unknown]
  - Anxiety [Unknown]
  - Feeling abnormal [Unknown]
  - Malaise [Unknown]
